FAERS Safety Report 16339584 (Version 1)
Quarter: 2019Q2

REPORT INFORMATION
  Report Type: Spontaneous
  Country: US (occurrence: US)
  Receive Date: 20190521
  Receipt Date: 20190521
  Transmission Date: 20190711
  Serious: No
  Sender: FDA-Public Use
  Company Number: US-SA-2019SA137335

PATIENT
  Sex: Male

DRUGS (9)
  1. AUBAGIO [Suspect]
     Active Substance: TERIFLUNOMIDE
     Dosage: 14 MG, QD
     Route: 048
     Dates: start: 20190419
  2. DEXILANT [Concomitant]
     Active Substance: DEXLANSOPRAZOLE
  3. DOXEPIN HCL [Concomitant]
     Active Substance: DOXEPIN HYDROCHLORIDE
  4. AMLODINE [AMLODIPINE] [Concomitant]
  5. METFORMIN HCL [Concomitant]
     Active Substance: METFORMIN HYDROCHLORIDE
  6. TRAZODONE [Concomitant]
     Active Substance: TRAZODONE HYDROCHLORIDE
  7. DULOXETINE. [Concomitant]
     Active Substance: DULOXETINE
  8. FLUOXETINE [Concomitant]
     Active Substance: FLUOXETINE HYDROCHLORIDE
  9. INDOMETHACIN [INDOMETACIN] [Concomitant]
     Active Substance: INDOMETHACIN

REACTIONS (11)
  - Memory impairment [Unknown]
  - Insomnia [Unknown]
  - Dyspnoea [Unknown]
  - Blood pressure increased [Unknown]
  - Appetite disorder [Unknown]
  - Depression [Unknown]
  - Asthenia [Unknown]
  - Balance disorder [Unknown]
  - Disturbance in attention [Unknown]
  - Unevaluable event [Unknown]
  - Eye pain [Unknown]
